FAERS Safety Report 15862111 (Version 2)
Quarter: 2019Q1

REPORT INFORMATION
  Report Type: Spontaneous
  Country: CH (occurrence: CH)
  Receive Date: 20190124
  Receipt Date: 20190221
  Transmission Date: 20190417
  Serious: Yes (Other)
  Sender: FDA-Public Use
  Company Number: CH-FERRINGPH-2019FE00142

PATIENT

DRUGS (7)
  1. PROPESS [Suspect]
     Active Substance: DINOPROSTONE
     Indication: LABOUR INDUCTION
     Dosage: 10 MG, ONCE/SINGLE
     Route: 067
     Dates: start: 20181111, end: 20181111
  2. DE-URSIL [Concomitant]
     Indication: CHOLESTASIS OF PREGNANCY
     Dosage: UNK
     Route: 048
  3. PROPESS [Suspect]
     Active Substance: DINOPROSTONE
     Dosage: 10 MG, ONCE/SINGLE
     Route: 067
     Dates: start: 20181108, end: 20181108
  4. SYNTOCINON [Concomitant]
     Active Substance: OXYTOCIN
     Route: 042
  5. PROPESS [Suspect]
     Active Substance: DINOPROSTONE
     Dosage: 10 MG, ONCE/SINGLE
     Route: 067
     Dates: start: 20181109, end: 20181109
  6. ELTROXIN [Concomitant]
     Active Substance: LEVOTHYROXINE
     Indication: HYPOTHYROIDISM
     Dosage: 0.5 MG, DAILY
     Route: 048
  7. MISOPROSTOL. [Concomitant]
     Active Substance: MISOPROSTOL
     Indication: LABOUR INDUCTION
     Route: 048

REACTIONS (6)
  - Vulvovaginal erythema [Recovered/Resolved]
  - Vulvovaginal pain [Recovered/Resolved]
  - Uterine tachysystole [Unknown]
  - Overdose [Unknown]
  - Vulvovaginal swelling [Recovered/Resolved]
  - Drug ineffective [Unknown]

NARRATIVE: CASE EVENT DATE: 20181108
